FAERS Safety Report 8860499 (Version 1)
Quarter: 2012Q4

REPORT INFORMATION
  Report Type: Report from Study
  Country: US (occurrence: US)
  Receive Date: 20121025
  Receipt Date: 20121025
  Transmission Date: 20130627
  Serious: Yes (Hospitalization)
  Sender: FDA-Public Use
  Company Number: US-UCBSA-069393

PATIENT
  Age: 27 Year
  Sex: Female
  Weight: 55.3 kg

DRUGS (1)
  1. CIMZIA [Suspect]
     Indication: CROHN^S DISEASE
     Dosage: 400MG
     Route: 058
     Dates: start: 200809

REACTIONS (1)
  - Abdominal abscess [Recovering/Resolving]
